FAERS Safety Report 6653354-X (Version None)
Quarter: 2010Q1

REPORT INFORMATION
  Report Type: 
  Country: None (occurrence: None)
  Receive Date: 20100326
  Receipt Date: 20100315
  Transmission Date: 20100710
  Serious: Yes (Hospitalization, Other)
  Sender: FDA-Public Use
  Company Number: PHEH2008US04277

PATIENT
  Sex: Female
  Weight: 90.9 kg

DRUGS (29)
  1. ZOMETA [Suspect]
     Indication: BREAST CANCER
     Dosage: 4 MG, QW3
     Route: 042
     Dates: start: 20010101, end: 20070401
  2. AREDIA [Suspect]
     Indication: METASTASES TO BONE
     Dosage: 90 MG, UNK
  3. AVASTIN [Concomitant]
  4. AROMASIN [Concomitant]
     Dosage: EVERY 3 WEEKS
     Route: 042
  5. CODEINE SULFATE [Concomitant]
  6. MORPHINE [Concomitant]
  7. ROBITUSSIN ^ROBINS^ [Concomitant]
  8. DOXYCYCLINE [Concomitant]
  9. ALBUTEROL [Concomitant]
  10. BEVACIZUMAB [Concomitant]
  11. DECADRON                                /NET/ [Concomitant]
  12. PROCRIT                            /00909301/ [Concomitant]
  13. NEULASTA [Concomitant]
  14. EPIRUBICIN [Concomitant]
  15. CYTOXAN [Concomitant]
  16. ANZEMET [Concomitant]
  17. LISINOPRIL [Concomitant]
  18. FLONASE [Concomitant]
  19. FLEXERIL [Concomitant]
  20. PERIDEX [Concomitant]
  21. LOVENOX [Concomitant]
     Dosage: UNK
  22. NEXIUM [Concomitant]
     Dosage: 40 MG
  23. METOPROLOL [Concomitant]
     Dosage: UNK
  24. XYLOCAIN VISCOS [Concomitant]
     Dosage: UNK
  25. LUNESTA [Concomitant]
     Dosage: UNK
  26. FLAGYL [Concomitant]
     Dosage: UNK
  27. PEN-VEE K [Concomitant]
     Dosage: UNK
  28. PAXIL [Concomitant]
     Dosage: UNK
     Dates: start: 20070301
  29. PEPCID [Concomitant]
     Dosage: UNK

REACTIONS (79)
  - ACQUIRED DIAPHRAGMATIC EVENTRATION [None]
  - ALOPECIA [None]
  - ANAEMIA [None]
  - ANHEDONIA [None]
  - ANXIETY [None]
  - ARTIFICIAL MENOPAUSE [None]
  - ATELECTASIS [None]
  - BONE DEBRIDEMENT [None]
  - BONE LESION [None]
  - BONE MARROW DISORDER [None]
  - BONE PAIN [None]
  - BRACHIOCEPHALIC VEIN STENOSIS [None]
  - CAROTID ARTERY INSUFFICIENCY [None]
  - CLAUSTROPHOBIA [None]
  - CLOSTRIDIUM DIFFICILE COLITIS [None]
  - CYANOSIS [None]
  - CYST [None]
  - DENTAL CARIES [None]
  - DEPRESSION [None]
  - DIAPHRAGMATIC PARALYSIS [None]
  - DIARRHOEA [None]
  - DYSPHAGIA [None]
  - DYSPHONIA [None]
  - FEBRILE NEUTROPENIA [None]
  - GINGIVAL ERYTHEMA [None]
  - HAEMATOCHEZIA [None]
  - HEPATIC MASS [None]
  - HEPATIC STEATOSIS [None]
  - HILAR LYMPHADENOPATHY [None]
  - HYPERTENSION [None]
  - INJURY [None]
  - INSOMNIA [None]
  - INTERVERTEBRAL DISC DISORDER [None]
  - INTERVERTEBRAL DISC PROTRUSION [None]
  - JUGULAR VEIN THROMBOSIS [None]
  - LIP BLISTER [None]
  - LUMBAR SPINAL STENOSIS [None]
  - LYMPHOEDEMA [None]
  - MASTECTOMY [None]
  - METASTASES TO LIVER [None]
  - METASTASES TO SPINE [None]
  - MOUTH ULCERATION [None]
  - MUCOSAL INFLAMMATION [None]
  - NAUSEA [None]
  - NECK MASS [None]
  - OBESITY [None]
  - ODYNOPHAGIA [None]
  - ORAL HERPES [None]
  - OSTEONECROSIS [None]
  - OSTEOSCLEROSIS [None]
  - PAIN [None]
  - PAIN IN JAW [None]
  - PAIN OF SKIN [None]
  - PALMAR-PLANTAR ERYTHRODYSAESTHESIA SYNDROME [None]
  - PERIARTHRITIS [None]
  - PHARYNGEAL ERYTHEMA [None]
  - PLEURAL EFFUSION [None]
  - PNEUMOTHORAX [None]
  - PULMONARY FIBROSIS [None]
  - PYELOCALIECTASIS [None]
  - PYREXIA [None]
  - REFLUX OESOPHAGITIS [None]
  - SEQUESTRECTOMY [None]
  - SEROMA [None]
  - SINUS DISORDER [None]
  - SINUS POLYP [None]
  - SINUSITIS [None]
  - SPINAL OSTEOARTHRITIS [None]
  - SUBCLAVIAN VEIN THROMBOSIS [None]
  - TENDONITIS [None]
  - THROMBOCYTOPENIA [None]
  - TOOTH ABSCESS [None]
  - TOOTH DEPOSIT [None]
  - TOOTH IMPACTED [None]
  - TOOTH LOSS [None]
  - URINARY INCONTINENCE [None]
  - VASCULAR OCCLUSION [None]
  - WEIGHT DECREASED [None]
  - WOUND INFECTION [None]
